FAERS Safety Report 13313020 (Version 1)
Quarter: 2017Q1

REPORT INFORMATION
  Report Type: Spontaneous
  Country: US (occurrence: US)
  Receive Date: 20170308
  Receipt Date: 20170308
  Transmission Date: 20170428
  Serious: Yes (Other)
  Sender: FDA-Public Use
  Company Number: US-ELI_LILLY_AND_COMPANY-US201607006510

PATIENT
  Sex: Female

DRUGS (1)
  1. CYMBALTA [Suspect]
     Active Substance: DULOXETINE HYDROCHLORIDE
     Indication: FIBROMYALGIA
     Dosage: UNK, UNKNOWN
     Route: 065
     Dates: start: 200810

REACTIONS (14)
  - Tunnel vision [Unknown]
  - Drug withdrawal syndrome [Unknown]
  - Nausea [Unknown]
  - Seizure [Unknown]
  - Sensory disturbance [Unknown]
  - Feeling abnormal [Unknown]
  - Anxiety [Unknown]
  - Affect lability [Unknown]
  - Paraesthesia [Unknown]
  - Headache [Unknown]
  - Migraine [Unknown]
  - Suicidal ideation [Unknown]
  - Disturbance in attention [Unknown]
  - Photophobia [Unknown]
